FAERS Safety Report 9806920 (Version 1)
Quarter: 2014Q1

REPORT INFORMATION
  Report Type: Spontaneous
  Country: US (occurrence: US)
  Receive Date: 20140109
  Receipt Date: 20140109
  Transmission Date: 20141002
  Serious: Yes (Death, Hospitalization, Other)
  Sender: FDA-Public Use
  Company Number: US-TAKEDA-2014TUS000096

PATIENT
  Sex: 0

DRUGS (3)
  1. LANSOPRAZOLE [Suspect]
     Indication: GASTROOESOPHAGEAL REFLUX DISEASE
     Dosage: 15 MG, QD
  2. ENZYME PREPARATIONS [Concomitant]
  3. VITAMINS /90003601/ [Concomitant]

REACTIONS (9)
  - Clostridium difficile colitis [Fatal]
  - Cardiopulmonary failure [Fatal]
  - Retroperitoneal haemorrhage [Fatal]
  - Off label use [Unknown]
  - Condition aggravated [Unknown]
  - Pyrexia [Unknown]
  - Abdominal distension [Unknown]
  - Vomiting [Unknown]
  - Diarrhoea [Unknown]
